FAERS Safety Report 4443468-7 (Version None)
Quarter: 2004Q3

REPORT INFORMATION
  Report Type: 
  Country: None (occurrence: None)
  Receive Date: 20040903
  Receipt Date: 20040903
  Transmission Date: 20050211
  Serious: Yes (Life-Threatening, Hospitalization)
  Sender: FDA-Public Use
  Company Number: None

PATIENT
  Age: 63 Year
  Sex: Male

DRUGS (1)
  1. LISINOPRIL [Suspect]
     Indication: HYPERTENSION
     Dosage: 40 MG/2 TAB Q DAILY PO
     Route: 048
     Dates: start: 20040201, end: 20040401

REACTIONS (4)
  - ANGIONEUROTIC OEDEMA [None]
  - FEELING ABNORMAL [None]
  - LOCALISED OEDEMA [None]
  - SWOLLEN TONGUE [None]
